FAERS Safety Report 6311368-3 (Version None)
Quarter: 2009Q3

REPORT INFORMATION
  Report Type: 
  Country: None (occurrence: None)
  Receive Date: 20090817
  Receipt Date: 20090805
  Transmission Date: 20100115
  Serious: Yes (Hospitalization)
  Sender: FDA-Public Use
  Company Number: JP-ELI_LILLY_AND_COMPANY-JP_040503226

PATIENT
  Sex: Female
  Weight: 55 kg

DRUGS (11)
  1. GEMZAR [Suspect]
     Indication: PANCREATIC CARCINOMA STAGE IV
     Dosage: 380 MG, OTHER
     Route: 042
     Dates: start: 20040407, end: 20040518
  2. RADIATION THERAPY [Concomitant]
     Indication: PANCREATIC CARCINOMA STAGE IV
     Dosage: 50.4 GY, UNKNOWN
     Dates: start: 20040407, end: 20040520
  3. ACINON [Concomitant]
     Indication: PROPHYLAXIS AGAINST GASTROINTESTINAL ULCER
     Dosage: 150 MG, 2/D
     Route: 048
     Dates: start: 20040311, end: 20040601
  4. LOXONIN [Concomitant]
     Indication: CANCER PAIN
     Dosage: 60 MG, 3/D
     Route: 048
     Dates: start: 20040311
  5. ANPEC [Concomitant]
     Indication: CANCER PAIN
     Dosage: 30 MG, 3/D
     Route: 054
     Dates: start: 20040408, end: 20040525
  6. MAGNESIUM OXIDE [Concomitant]
     Indication: CONSTIPATION
     Dosage: 1000 MG, 3/D
     Route: 048
     Dates: start: 20040408
  7. RINDERON [Concomitant]
     Indication: DECREASED APPETITE
     Dosage: 1 MG, DAILY (1/D)
     Route: 048
     Dates: start: 20040419, end: 20040525
  8. POSTERISAN FORTE [Concomitant]
     Indication: HAEMORRHOIDS
     Dosage: 2000 MG, DAILY (1/D)
     Route: 062
     Dates: start: 20040426
  9. MONILAC [Concomitant]
     Indication: CONSTIPATION
     Dosage: 10 ML, DAILY (1/D)
     Route: 048
     Dates: start: 20040426
  10. NAUZELIN [Concomitant]
     Indication: NAUSEA
     Dosage: 10 MG, 3/D
     Route: 048
     Dates: start: 20040513
  11. KENALOG [Concomitant]
     Indication: STOMATITIS
     Dosage: UNK, UNKNOWN
     Route: 065
     Dates: start: 20040517

REACTIONS (1)
  - INTERSTITIAL LUNG DISEASE [None]
